FAERS Safety Report 12890846 (Version 1)
Quarter: 2016Q4

REPORT INFORMATION
  Report Type: Report from Study
  Country: IT (occurrence: IT)
  Receive Date: 20161027
  Receipt Date: 20161027
  Transmission Date: 20170207
  Serious: Yes (Hospitalization)
  Sender: FDA-Public Use
  Company Number: IT-BAXALTA-2016BLT007678

PATIENT
  Age: 49 Year
  Sex: Male

DRUGS (21)
  1. ONCASPAR [Suspect]
     Active Substance: PEGASPARGASE
     Indication: ACUTE LYMPHOCYTIC LEUKAEMIA
     Dosage: 3750 IU, CYCLE 2 DAY 8
     Route: 042
     Dates: start: 20161004, end: 20161004
  2. DEXAMETHASONE. [Suspect]
     Active Substance: DEXAMETHASONE
     Dosage: 10 MG, 2X A DAY
     Route: 048
     Dates: start: 20160927, end: 20161001
  3. CYTARABINE. [Suspect]
     Active Substance: CYTARABINE
     Indication: ACUTE LYMPHOCYTIC LEUKAEMIA
     Dosage: 50 MG, CYCLE 2
     Route: 037
     Dates: start: 20160927, end: 20160927
  4. CYTARABINE. [Suspect]
     Active Substance: CYTARABINE
     Dosage: 145 MG, CYCLE 2
     Route: 058
     Dates: start: 20160928, end: 20161001
  5. GRANULOCYTE COLONY STIMULATING FACTOR [Suspect]
     Active Substance: GRANULOCYTE COLONY-STIMULATING FACTOR NOS
     Indication: ACUTE LYMPHOCYTIC LEUKAEMIA
     Dosage: CYCLE 1
     Route: 065
     Dates: start: 20160827, end: 20160917
  6. FILGRASTIM [Suspect]
     Active Substance: FILGRASTIM
     Indication: ACUTE LYMPHOCYTIC LEUKAEMIA
     Dosage: UNK
     Route: 065
     Dates: start: 20161004
  7. PREDNISONE. [Suspect]
     Active Substance: PREDNISONE
     Indication: ACUTE LYMPHOCYTIC LEUKAEMIA
     Dosage: PRE-PHASE
     Route: 065
     Dates: start: 20160817, end: 20160821
  8. CYCLOPHOSPHAMIDE. [Suspect]
     Active Substance: CYCLOPHOSPHAMIDE
     Dosage: 1930 MG, CYCLE 2
     Route: 042
     Dates: start: 20160927, end: 20160927
  9. VINCRISTINE [Suspect]
     Active Substance: VINCRISTINE
     Dosage: 2 MG, CYCLE 1
     Route: 042
     Dates: start: 20160829, end: 20160829
  10. VINCRISTINE [Suspect]
     Active Substance: VINCRISTINE
     Dosage: 2 MG, CYCLE 1
     Route: 042
     Dates: start: 20160905, end: 20160905
  11. DEXAMETHASONE. [Suspect]
     Active Substance: DEXAMETHASONE
     Dosage: 4 MG, CYCLE 2
     Route: 037
     Dates: start: 20160927, end: 20160927
  12. METHOTREXATE. [Suspect]
     Active Substance: METHOTREXATE
     Indication: ACUTE LYMPHOCYTIC LEUKAEMIA
     Dosage: 12.5 MG, CYCLE 2
     Route: 037
     Dates: start: 20160927, end: 20160927
  13. MERCAPTOPURINE. [Suspect]
     Active Substance: MERCAPTOPURINE
     Indication: ACUTE LYMPHOCYTIC LEUKAEMIA
     Dosage: 100 MG, 1X A DAY
     Route: 048
     Dates: start: 20160927, end: 20161006
  14. DEXAMETHASONE. [Suspect]
     Active Substance: DEXAMETHASONE
     Indication: ACUTE LYMPHOCYTIC LEUKAEMIA
     Dosage: 10 MG, 2X A DAY, CYCLE 1
     Route: 065
     Dates: start: 20160822, end: 20160826
  15. DEXAMETHASONE. [Suspect]
     Active Substance: DEXAMETHASONE
     Dosage: 10 MG, 2X A DAY, CYCLE 1
     Route: 065
     Dates: start: 20160905, end: 20160909
  16. CYCLOPHOSPHAMIDE. [Suspect]
     Active Substance: CYCLOPHOSPHAMIDE
     Indication: ACUTE LYMPHOCYTIC LEUKAEMIA
     Dosage: 590 MG, GLOBALLY, CYCLE 1
     Route: 042
     Dates: start: 20160919, end: 20160921
  17. IDARUBICIN [Suspect]
     Active Substance: IDARUBICIN
     Dosage: 23 MG, CYCLE 2
     Route: 042
     Dates: start: 20160927, end: 20160927
  18. VINCRISTINE [Suspect]
     Active Substance: VINCRISTINE
     Dosage: 2 MG, CYCLE 1
     Route: 042
     Dates: start: 20160912, end: 20160912
  19. VINCRISTINE [Suspect]
     Active Substance: VINCRISTINE
     Indication: ACUTE LYMPHOCYTIC LEUKAEMIA
     Dosage: 2 MG, CYCLE 1
     Route: 042
     Dates: start: 20160822, end: 20160822
  20. IDARUBICIN [Suspect]
     Active Substance: IDARUBICIN
     Indication: ACUTE LYMPHOCYTIC LEUKAEMIA
     Dosage: 24 MG, CYCLE 1
     Route: 042
     Dates: start: 20160822, end: 20160823
  21. ONCASPAR [Suspect]
     Active Substance: PEGASPARGASE
     Dosage: 3750 IU, CYCLE 1
     Route: 042
     Dates: start: 20160831, end: 20160831

REACTIONS (1)
  - Hypotension [Not Recovered/Not Resolved]

NARRATIVE: CASE EVENT DATE: 20161008
